FAERS Safety Report 18349158 (Version 1)
Quarter: 2020Q4

REPORT INFORMATION
  Report Type: Spontaneous
  Country: US (occurrence: US)
  Receive Date: 20201006
  Receipt Date: 20201006
  Transmission Date: 20210114
  Serious: No
  Sender: FDA-Public Use
  Company Number: None

PATIENT
  Age: 29 Year
  Sex: Male
  Weight: 112.5 kg

DRUGS (1)
  1. QUICLEAN [Suspect]
     Active Substance: ALCOHOL
     Indication: COVID-19 PROPHYLAXIS
     Dosage: ?          QUANTITY:1 1;?
     Route: 061
     Dates: start: 20200529, end: 20200601

REACTIONS (2)
  - Headache [None]
  - Product odour abnormal [None]

NARRATIVE: CASE EVENT DATE: 20200529
